FAERS Safety Report 24772738 (Version 1)
Quarter: 2024Q4

REPORT INFORMATION
  Report Type: Spontaneous
  Country: GB (occurrence: GB)
  Receive Date: 20241225
  Receipt Date: 20241225
  Transmission Date: 20250114
  Serious: Yes (Hospitalization)
  Sender: DEXCEL
  Company Number: None

PATIENT
  Age: 62 Year
  Sex: Female

DRUGS (13)
  1. MiconazoleMICONAZOLE (Specific Substance SUB8872) [Concomitant]
     Dosage: 2 % CREAM - TWICE A DAY IN THE MORNING AND AT NIGHT FOR 7 DAYS
  2. RAMIPRIL [Concomitant]
     Active Substance: RAMIPRIL
     Dosage: 10MG CAPSULES ONE EACH DAY
  3. PropranololPROPRANOLOL (Specific Substance SUB312) [Concomitant]
  4. PropranololPROPRANOLOL (Specific Substance SUB312) [Concomitant]
     Dosage: 40MG TABLET - ONE TABLET TWICE A DAY- REDUCED TO 30MG BD.?SUSPENDED
  5. NicotineNICOTINE (Specific Substance SUB87) [Concomitant]
     Dosage: NICOTINE 15 MG/DOSE INHALATOR?NICOTINE 21 MG/24 HOURS PATCH
  6. FamotidineFAMOTIDINE (Specific Substance SUB5582) [Concomitant]
  7. CetirizineCETIRIZINE (Specific Substance SUB734) [Concomitant]
     Dosage: 10MG TABS - 1 OM
  8. AtorvastatinATORVASTATIN (Specific Substance SUB7358) [Concomitant]
     Dosage: 20MG TABLETS - ONE TABLET A DAY
  9. OMEPRAZOLE [Suspect]
     Active Substance: OMEPRAZOLE
     Dosage: 20MG CAPSULE - ONE CAPSULE BD
  10. ParacetamolPARACETAMOL (Specific Substance SUB155) [Concomitant]
     Dosage: 500 MG TABLETS - 1000MG FOUR TIMES A DAY PRN PAIN - 7 DAYS?SHORT COURSE
  11. SennaSENNA (Specific Substance SUB381) [Concomitant]
     Dosage: 7.5 MG TABLETS - 15MG EVERY NIGHT - 7 DAYS SHORT COURSE
  12. Folic acidFOLIC ACID (Specific Substance SUB5909) [Concomitant]
     Dosage: 5MG TABLETS - 1 TABLET ONCE A DAY
  13. INDAPAMIDE [Concomitant]
     Active Substance: INDAPAMIDE
     Dosage: 1.5MG MODIFIED RELEASE TABLETS - ONE IN THE MORNING MAY LAST USED?- SUSPENDED

REACTIONS (1)
  - Pseudogynaecomastia [Unknown]
